FAERS Safety Report 12312006 (Version 1)
Quarter: 2016Q2

REPORT INFORMATION
  Report Type: Spontaneous
  Country: FR (occurrence: FR)
  Receive Date: 20160427
  Receipt Date: 20160427
  Transmission Date: 20160815
  Serious: Yes (Hospitalization)
  Sender: FDA-Public Use
  Company Number: FR-ABBVIE-16P-056-1610464-00

PATIENT
  Age: 13 Year
  Sex: Male
  Weight: 44 kg

DRUGS (8)
  1. MICROPAKINE L.P [Suspect]
     Active Substance: VALPROATE SODIUM
     Route: 048
     Dates: end: 20160314
  2. DRIPTANE [Suspect]
     Active Substance: OXYBUTYNIN
     Route: 048
     Dates: start: 20160315, end: 20160315
  3. MICROPAKINE L.P [Suspect]
     Active Substance: VALPROATE SODIUM
     Indication: PRODUCT USED FOR UNKNOWN INDICATION
     Route: 048
     Dates: end: 20160314
  4. DRIPTANE [Suspect]
     Active Substance: OXYBUTYNIN
     Indication: PRODUCT USED FOR UNKNOWN INDICATION
     Dosage: 5MG
     Route: 065
     Dates: end: 20160314
  5. MICROPAKINE L.P [Suspect]
     Active Substance: VALPROATE SODIUM
     Route: 048
     Dates: start: 20160315, end: 20160315
  6. MICROPAKINE L.P [Suspect]
     Active Substance: VALPROATE SODIUM
     Route: 048
     Dates: start: 20160315, end: 20160315
  7. NOZINAN [Suspect]
     Active Substance: LEVOMEPROMAZINE
     Indication: PRODUCT USED FOR UNKNOWN INDICATION
     Route: 048
     Dates: end: 20160314
  8. NOZINAN [Suspect]
     Active Substance: LEVOMEPROMAZINE
     Dosage: 2 INTAKE ONCE
     Route: 048
     Dates: start: 20160315, end: 20160315

REACTIONS (6)
  - Medication error [Recovered/Resolved]
  - Overdose [Recovered/Resolved]
  - Somnolence [Recovered/Resolved]
  - Heart rate decreased [None]
  - Aggression [None]
  - Blood pressure decreased [None]

NARRATIVE: CASE EVENT DATE: 20160315
